FAERS Safety Report 5851948-2 (Version None)
Quarter: 2008Q3

REPORT INFORMATION
  Report Type: 
  Country: None (occurrence: None)
  Receive Date: 20080819
  Receipt Date: 20080808
  Transmission Date: 20090109
  Serious: No
  Sender: FDA-Public Use
  Company Number: 08H-163-0314701-00

PATIENT
  Sex: Male

DRUGS (1)
  1. LIDOCAINE 2% [Suspect]
     Indication: DRUG USE FOR UNKNOWN INDICATION
     Dosage: ONCE, INTRADERMAL
     Route: 023
     Dates: start: 20080725, end: 20080725

REACTIONS (3)
  - DIZZINESS [None]
  - FLUSHING [None]
  - TREMOR [None]
